FAERS Safety Report 10200184 (Version 1)
Quarter: 2014Q2

REPORT INFORMATION
  Report Type: Report from Study
  Country: FR (occurrence: FR)
  Receive Date: 20140527
  Receipt Date: 20140527
  Transmission Date: 20141212
  Serious: Yes (Hospitalization)
  Sender: FDA-Public Use
  Company Number: FR-DSJP-DSE-2014-109209

PATIENT
  Sex: 0

DRUGS (5)
  1. OLMETEC 10 MG [Suspect]
     Indication: HYPERTENSION
     Dosage: 10 MG, TID
     Route: 048
     Dates: start: 2010
  2. OLMETEC 10 MG [Suspect]
     Dosage: 20 MG, QD
     Route: 048
     Dates: start: 201303, end: 20130515
  3. OLMETEC 10 MG [Suspect]
     Dosage: 10 MG, QD
     Route: 048
     Dates: start: 201305, end: 201305
  4. TIORFAN [Concomitant]
     Indication: PRODUCT USED FOR UNKNOWN INDICATION
  5. LACTEOL                            /00079701/ [Concomitant]
     Indication: PRODUCT USED FOR UNKNOWN INDICATION

REACTIONS (11)
  - Weight decreased [Unknown]
  - Drug administration error [Recovered/Resolved]
  - Diarrhoea [Recovered/Resolved]
  - Intestinal villi atrophy [Unknown]
  - Hypokalaemia [None]
  - Metabolic acidosis [None]
  - Hypoalbuminaemia [None]
  - Hypogammaglobulinaemia [None]
  - Beta 2 microglobulin increased [None]
  - Light chain analysis increased [None]
  - Gastrointestinal mucosal disorder [None]
